FAERS Safety Report 4975342-1 (Version None)
Quarter: 2006Q2

REPORT INFORMATION
  Report Type: 
  Country: None (occurrence: None)
  Receive Date: 20060417
  Receipt Date: 20060417
  Transmission Date: 20061013
  Serious: No
  Sender: FDA-Public Use
  Company Number: None

PATIENT

DRUGS (1)
  1. SENSORCAINE [Suspect]
     Indication: EPIDURAL ANAESTHESIA
     Dosage: 2 ML ONCE (INTRADISCAL)(INTRASPINAL)
     Route: 024
     Dates: start: 20060315, end: 20060407

REACTIONS (1)
  - DRUG INEFFECTIVE [None]
